FAERS Safety Report 5657060-X (Version None)
Quarter: 2008Q1

REPORT INFORMATION
  Report Type: 
  Country: None (occurrence: None)
  Receive Date: 20080219
  Receipt Date: 20071107
  Transmission Date: 20080703
  Serious: No
  Sender: FDA-Public Use
  Company Number: WAES 0711USA01778

PATIENT
  Age: 76 Year
  Sex: Female

DRUGS (7)
  1. JANUVIA [Suspect]
     Indication: DIABETES MELLITUS
     Dosage: 100 MG/DAILY/PO ; 100 MG/DAILY/PO
     Route: 048
     Dates: start: 20070801, end: 20070101
  2. JANUVIA [Suspect]
     Indication: DIABETES MELLITUS
     Dosage: 100 MG/DAILY/PO ; 100 MG/DAILY/PO
     Route: 048
     Dates: start: 20071001, end: 20070101
  3. COREG [Concomitant]
  4. COUMADIN [Concomitant]
  5. LASIX [Concomitant]
  6. INSULIN [Concomitant]
  7. PREDNISONE TAB [Concomitant]

REACTIONS (1)
  - GOUT [None]
